FAERS Safety Report 24854210 (Version 5)
Quarter: 2025Q2

REPORT INFORMATION
  Report Type: Report from Study
  Country: US (occurrence: US)
  Receive Date: 20250117
  Receipt Date: 20250423
  Transmission Date: 20250717
  Serious: Yes (Other)
  Sender: EMD SERONO INC
  Company Number: US-Merck Healthcare KGaA-2025001628

PATIENT
  Sex: Male

DRUGS (3)
  1. MAVENCLAD [Suspect]
     Active Substance: CLADRIBINE
     Indication: Multiple sclerosis
  2. MAVENCLAD [Suspect]
     Active Substance: CLADRIBINE
  3. MAVENCLAD [Suspect]
     Active Substance: CLADRIBINE

REACTIONS (5)
  - Psoriatic arthropathy [Not Recovered/Not Resolved]
  - Nasal congestion [Unknown]
  - Bloody discharge [Unknown]
  - Purulent discharge [Unknown]
  - Skin laceration [Unknown]
